FAERS Safety Report 11192858 (Version 3)
Quarter: 2016Q2

REPORT INFORMATION
  Report Type: Spontaneous
  Country: US (occurrence: US)
  Receive Date: 20150616
  Receipt Date: 20160621
  Transmission Date: 20160815
  Serious: Yes (Other)
  Sender: FDA-Public Use
  Company Number: US-ASTRAZENECA-2014SE07640

PATIENT
  Age: 19760 Day
  Sex: Female
  Weight: 116.1 kg

DRUGS (27)
  1. GLIPIZIDE. [Concomitant]
     Active Substance: GLIPIZIDE
     Dosage: 5.0MG UNKNOWN
     Dates: start: 20060418
  2. NEURONTIN [Concomitant]
     Active Substance: GABAPENTIN
     Route: 048
     Dates: start: 20140418
  3. ZOLOFT [Concomitant]
     Active Substance: SERTRALINE HYDROCHLORIDE
     Route: 048
     Dates: start: 20140714
  4. SIMCOR [Concomitant]
     Active Substance: NIACIN\SIMVASTATIN
     Dates: start: 20121105
  5. LOSARTAN. [Concomitant]
     Active Substance: LOSARTAN
     Route: 065
  6. ZOCOR [Concomitant]
     Active Substance: SIMVASTATIN
     Dosage: 20.0MG UNKNOWN
     Dates: start: 20060418
  7. EFFEXOR XR [Concomitant]
     Active Substance: VENLAFAXINE HYDROCHLORIDE
     Dosage: 75.0MG UNKNOWN
     Dates: start: 20070126
  8. APIDRA [Concomitant]
     Active Substance: INSULIN GLULISINE
     Dosage: 100 UNITS/ML
     Dates: start: 20150219
  9. FEXOFENADINE [Concomitant]
     Active Substance: FEXOFENADINE\FEXOFENADINE HYDROCHLORIDE
     Dosage: 180.0MG UNKNOWN
     Dates: start: 20070815
  10. LISINOPRIL. [Concomitant]
     Active Substance: LISINOPRIL
     Dosage: 10.0MG UNKNOWN
     Dates: start: 20060515
  11. PROMETHAZINE [Concomitant]
     Active Substance: PROMETHAZINE\PROMETHAZINE HYDROCHLORIDE
     Dosage: 25.0MG UNKNOWN
     Dates: start: 20060522
  12. HYDROCHLOROTHIAZIDE. [Concomitant]
     Active Substance: HYDROCHLOROTHIAZIDE
     Route: 048
     Dates: start: 20140113
  13. MEVACOR [Concomitant]
     Active Substance: LOVASTATIN
     Route: 048
     Dates: start: 20140714
  14. NAPROSYN/NAPROXEN [Concomitant]
     Route: 048
     Dates: start: 20150427
  15. RANITIDINE. [Concomitant]
     Active Substance: RANITIDINE
     Route: 048
     Dates: start: 20131220
  16. BYETTA [Suspect]
     Active Substance: EXENATIDE
     Indication: TYPE 2 DIABETES MELLITUS
     Route: 065
     Dates: start: 20060515, end: 200709
  17. AMRIX/FLEXERIL/CYCLOBENZAPRINE [Concomitant]
     Dosage: EVERY DAY
     Route: 048
     Dates: start: 20101027
  18. METFORMIN [Concomitant]
     Active Substance: METFORMIN HYDROCHLORIDE
     Dosage: 500.0MG UNKNOWN
     Dates: start: 20060418
  19. SYNTHROID/LEVOTHROID [Concomitant]
     Route: 048
     Dates: start: 20140714
  20. PRINZIDE/ZESTORETIC [Concomitant]
     Dosage: 10-12.5 MG, DAILY
     Route: 048
     Dates: start: 20140714
  21. ULTRAM [Concomitant]
     Active Substance: TRAMADOL HYDROCHLORIDE
     Route: 048
     Dates: start: 20140911
  22. TAPAZOLE [Concomitant]
     Active Substance: METHIMAZOLE
     Route: 048
     Dates: start: 20101027
  23. PRAVASTATIN [Concomitant]
     Active Substance: PRAVASTATIN\PRAVASTATIN SODIUM
     Route: 048
     Dates: start: 20131110
  24. BYETTA [Suspect]
     Active Substance: EXENATIDE
     Indication: TYPE 2 DIABETES MELLITUS
     Dosage: 10.0UG UNKNOWN
     Route: 065
     Dates: start: 20060515
  25. BYETTA [Suspect]
     Active Substance: EXENATIDE
     Indication: TYPE 2 DIABETES MELLITUS
     Dosage: 10.0UG UNKNOWN
     Route: 065
     Dates: start: 20070813
  26. PREVACID [Concomitant]
     Active Substance: LANSOPRAZOLE
     Dosage: 30.0MG UNKNOWN
     Dates: start: 20060515
  27. LASIX [Concomitant]
     Active Substance: FUROSEMIDE
     Route: 048
     Dates: start: 20101027

REACTIONS (5)
  - Goitre [Unknown]
  - Papillary thyroid cancer [Unknown]
  - Hyperparathyroidism [Unknown]
  - Basedow^s disease [Unknown]
  - Hypothyroidism [Unknown]

NARRATIVE: CASE EVENT DATE: 20100914
